FAERS Safety Report 4397654-5 (Version None)
Quarter: 2004Q3

REPORT INFORMATION
  Report Type: 
  Country: None (occurrence: None)
  Receive Date: 20040713
  Receipt Date: 20040630
  Transmission Date: 20050211
  Serious: Yes (Other)
  Sender: FDA-Public Use
  Company Number: GBWYE839621JUN04

PATIENT
  Age: 79 Year
  Sex: Male

DRUGS (8)
  1. TAZOCIN (PIPERACILLIN/TAZOBACTAM, INJECTION) [Suspect]
     Indication: ABDOMINAL SEPSIS
     Dosage: 4.5 MG INTRAVENOUS
     Route: 042
     Dates: start: 20040518
  2. CANDESARTAN (CANDESARTAN) [Concomitant]
  3. WARFARIN (WARFARIN) [Concomitant]
  4. GENTAMICIN [Concomitant]
  5. INSULIN MC ACTRAPID (INSULIN) [Concomitant]
  6. PARACETAMOL (PARACETAMOL) [Concomitant]
  7. METRONIDAZOLE [Concomitant]
  8. HYDROCORTISONE [Concomitant]

REACTIONS (3)
  - BLOOD CREATININE INCREASED [None]
  - DRUG TOXICITY [None]
  - GRAND MAL CONVULSION [None]
